FAERS Safety Report 24054481 (Version 2)
Quarter: 2024Q3

REPORT INFORMATION
  Report Type: Spontaneous
  Country: GB (occurrence: GB)
  Receive Date: 20240705
  Receipt Date: 20240802
  Transmission Date: 20241017
  Serious: Yes (Other)
  Sender: RANBAXY
  Company Number: GB-SUN PHARMACEUTICAL INDUSTRIES LTD-2024RR-455321

PATIENT
  Age: 47 Year
  Sex: Female
  Weight: 95 kg

DRUGS (4)
  1. SERTRALINE [Suspect]
     Active Substance: SERTRALINE HYDROCHLORIDE
     Indication: Adjustment disorder with mixed anxiety and depressed mood
     Dosage: 50MG THEN 100MG IN THE MORNING
     Route: 065
     Dates: start: 20240601
  2. RAMIPRIL [Concomitant]
     Active Substance: RAMIPRIL
     Indication: Adverse drug reaction
     Dosage: UNK
     Route: 065
     Dates: start: 20220101
  3. ESTROGEL [Concomitant]
     Active Substance: ESTRADIOL
     Indication: Menopause
     Dosage: UNK
     Route: 065
     Dates: start: 20210101
  4. LEVOTHYROXINE [Concomitant]
     Active Substance: LEVOTHYROXINE\LEVOTHYROXINE SODIUM
     Indication: Hypothyroidism
     Dosage: UNK
     Route: 065
     Dates: start: 20180101

REACTIONS (4)
  - Hyperhidrosis [Not Recovered/Not Resolved]
  - Tinnitus [Not Recovered/Not Resolved]
  - Headache [Not Recovered/Not Resolved]
  - Muscular weakness [Not Recovered/Not Resolved]

NARRATIVE: CASE EVENT DATE: 20240605
